FAERS Safety Report 5419132-4 (Version None)
Quarter: 2007Q3

REPORT INFORMATION
  Report Type: 
  Country: None (occurrence: None)
  Receive Date: 20070820
  Receipt Date: 20070813
  Transmission Date: 20080115
  Serious: Yes (Other)
  Sender: FDA-Public Use
  Company Number: PHBS2006IN13280

PATIENT
  Age: 28 Year
  Sex: Female

DRUGS (2)
  1. DICLOFENAC SODIUM [Suspect]
  2. ANTIBIOTICS [Concomitant]

REACTIONS (6)
  - EMBOLIA CUTIS MEDICAMENTOSA [None]
  - INJECTION SITE DISCOLOURATION [None]
  - INJECTION SITE NECROSIS [None]
  - INJECTION SITE PAIN [None]
  - SCAR [None]
  - SURGERY [None]
